FAERS Safety Report 9665455 (Version 1)
Quarter: 2013Q4

REPORT INFORMATION
  Report Type: Spontaneous
  Country: US (occurrence: None)
  Receive Date: 20131031
  Receipt Date: 20131031
  Transmission Date: 20140711
  Serious: Yes (Other)
  Sender: FDA-Public Use
  Company Number: None

PATIENT
  Sex: Female

DRUGS (4)
  1. BACLOFEN INTRATHECAL ^250^ [Suspect]
     Indication: PAIN
     Dosage: ^85.62^
  2. FENTANYL ^3500^ [Suspect]
     Dosage: ^1198.7^
  3. CLONIDINE ^300^ [Suspect]
  4. BUPIVACAINE ^30.0^ [Suspect]

REACTIONS (9)
  - Influenza like illness [None]
  - Headache [None]
  - Convulsion [None]
  - Cerebrovascular accident [None]
  - Device dislocation [None]
  - Medical device complication [None]
  - Tremor [None]
  - Feeling of body temperature change [None]
  - Memory impairment [None]
